APPROVED DRUG PRODUCT: LEVOFLOXACIN
Active Ingredient: LEVOFLOXACIN
Strength: 250MG
Dosage Form/Route: TABLET;ORAL
Application: A078424 | Product #001 | TE Code: AB
Applicant: LUPIN LTD
Approved: Jun 20, 2011 | RLD: No | RS: No | Type: RX